FAERS Safety Report 7333619-9 (Version None)
Quarter: 2011Q1

REPORT INFORMATION
  Report Type: 
  Country: None (occurrence: None)
  Receive Date: 20110305
  Receipt Date: 20110218
  Transmission Date: 20110831
  Serious: No
  Sender: FDA-Public Use
  Company Number: US-B.I. PHARMACEUTICALS,INC./RIDGEFIELD-2011-BP-06205BP

PATIENT
  Sex: Male

DRUGS (8)
  1. DIOVAN [Concomitant]
     Indication: HYPERTENSION
  2. PRADAXA [Suspect]
     Indication: ATRIAL FIBRILLATION
     Dosage: 300 MG
     Route: 048
     Dates: start: 20101201
  3. DOXAZOSIN [Concomitant]
     Indication: HYPERTENSION
  4. REQUIP [Concomitant]
     Indication: RESTLESS LEGS SYNDROME
  5. CRESTOR [Concomitant]
     Indication: BLOOD CHOLESTEROL INCREASED
  6. ZETIA [Concomitant]
     Indication: BLOOD CHOLESTEROL INCREASED
  7. BIPAP MACHINE [Concomitant]
     Indication: SLEEP APNOEA SYNDROME
  8. NABUMETONE [Concomitant]
     Indication: ARTHRITIS

REACTIONS (1)
  - DRY MOUTH [None]
